FAERS Safety Report 16983142 (Version 4)
Quarter: 2024Q1

REPORT INFORMATION
  Report Type: Spontaneous
  Country: CA (occurrence: None)
  Receive Date: 20191101
  Receipt Date: 20240123
  Transmission Date: 20240409
  Serious: Yes (Death)
  Sender: FDA-Public Use
  Company Number: CA-ROCHE-2446741

PATIENT
  Age: 75 Year
  Sex: Male
  Weight: 68 kg

DRUGS (14)
  1. ESBRIET [Suspect]
     Active Substance: PIRFENIDONE
     Indication: Idiopathic pulmonary fibrosis
     Route: 048
  2. ESBRIET [Suspect]
     Active Substance: PIRFENIDONE
     Route: 065
  3. ESBRIET [Suspect]
     Active Substance: PIRFENIDONE
     Route: 048
  4. ESBRIET [Suspect]
     Active Substance: PIRFENIDONE
     Route: 048
     Dates: start: 201604, end: 2016
  5. MORPHINE SULFATE [Suspect]
     Active Substance: MORPHINE SULFATE
     Indication: Cough
     Route: 065
  6. ESBRIET [Suspect]
     Active Substance: PIRFENIDONE
     Indication: Idiopathic pulmonary fibrosis
     Route: 048
  7. MORPHINE [Suspect]
     Active Substance: MORPHINE
     Indication: Cough
     Route: 065
  8. ASPIRIN [Concomitant]
     Active Substance: ASPIRIN
  9. ALLOPURINOL [Concomitant]
     Active Substance: ALLOPURINOL
  10. BISOPROLOL [Concomitant]
     Active Substance: BISOPROLOL\BISOPROLOL FUMARATE
  11. METFORMIN [Concomitant]
     Active Substance: METFORMIN HYDROCHLORIDE
  12. OXYGEN [Concomitant]
     Active Substance: OXYGEN
  13. RABEPRAZOLE [Concomitant]
     Active Substance: RABEPRAZOLE
  14. ROSUVASTATIN [Concomitant]
     Active Substance: ROSUVASTATIN

REACTIONS (14)
  - Asthenia [Fatal]
  - Constipation [Fatal]
  - Cough [Fatal]
  - Decreased appetite [Fatal]
  - Dyspnoea [Fatal]
  - Fatigue [Fatal]
  - Frustration tolerance decreased [Fatal]
  - Gait disturbance [Fatal]
  - Malaise [Fatal]
  - Nausea [Fatal]
  - Pulmonary function test abnormal [Fatal]
  - Tooth infection [Fatal]
  - Drug ineffective for unapproved indication [Fatal]
  - Off label use [Fatal]
